FAERS Safety Report 6382448-1 (Version None)
Quarter: 2009Q3

REPORT INFORMATION
  Report Type: 
  Country: None (occurrence: None)
  Receive Date: 20090924
  Receipt Date: 20090714
  Transmission Date: 20100115
  Serious: Yes (Hospitalization)
  Sender: FDA-Public Use
  Company Number: WAES 0907USA02057

PATIENT
  Age: 77 Year
  Sex: Male

DRUGS (3)
  1. VYTORIN [Suspect]
     Indication: CARDIAC OPERATION
     Dosage: 10-40 MG/DAILY/PO
     Route: 048
     Dates: start: 20030101
  2. DIOVAN [Concomitant]
  3. PROTEGRA [Concomitant]

REACTIONS (5)
  - ABDOMINAL DISCOMFORT [None]
  - ACTIVITIES OF DAILY LIVING IMPAIRED [None]
  - GASTROENTERITIS VIRAL [None]
  - HEADACHE [None]
  - HOT FLUSH [None]
